FAERS Safety Report 7819745-6 (Version None)
Quarter: 2011Q4

REPORT INFORMATION
  Report Type: 
  Country: None (occurrence: None)
  Receive Date: 20111018
  Receipt Date: 20110627
  Transmission Date: 20120403
  Serious: Yes (Hospitalization)
  Sender: FDA-Public Use
  Company Number: US-ASTRAZENECA-2011SE39078

PATIENT
  Age: 67 Year
  Sex: Female

DRUGS (1)
  1. SYMBICORT [Suspect]
     Route: 055

REACTIONS (4)
  - DRUG DOSE OMISSION [None]
  - ASTHMA [None]
  - BRONCHITIS [None]
  - HYPERSENSITIVITY [None]
